FAERS Safety Report 12347642 (Version 2)
Quarter: 2016Q2

REPORT INFORMATION
  Report Type: Spontaneous
  Country: JP (occurrence: JP)
  Receive Date: 20160509
  Receipt Date: 20160609
  Transmission Date: 20160815
  Serious: Yes (Other)
  Sender: FDA-Public Use
  Company Number: JP-PFIZER INC-2016247967

PATIENT
  Age: 50 Year
  Sex: Male

DRUGS (7)
  1. IRINOTECAN HCL [Suspect]
     Active Substance: IRINOTECAN HYDROCHLORIDE
     Dosage: 180 MG/M2, UNK
  2. GEMCITABINE HYDROCHLORIDE. [Suspect]
     Active Substance: GEMCITABINE HYDROCHLORIDE
     Dosage: 1000 MG/M2, CYCLIC, DAYS 1, 8 AND 15
  3. FLUOROURACIL. [Suspect]
     Active Substance: FLUOROURACIL
     Indication: ADENOCARCINOMA
     Dosage: 400 MG/M2, UNK
     Route: 040
  4. FOLINIC ACID [Suspect]
     Active Substance: LEUCOVORIN
     Indication: ADENOCARCINOMA
     Dosage: 200 MG/M2, CYCLIC, EVERY 2 WEEKS
  5. FLUOROURACIL. [Suspect]
     Active Substance: FLUOROURACIL
     Dosage: 2400 MG/M2 AS A 46-HOUR CONTINUOUS INFUSION
     Route: 041
  6. TS-1 [Suspect]
     Active Substance: GIMERACIL\OTERACIL\TEGAFUR
     Indication: ADENOCARCINOMA
     Dosage: 80 MG/M2,TWICE DAILY (ON RADIATION DAY ALONE) FOR 1 MONTH
  7. OXALIPLATIN. [Suspect]
     Active Substance: OXALIPLATIN
     Dosage: 85 MG/M2, UNK

REACTIONS (2)
  - Abscess [Unknown]
  - Perforation bile duct [Unknown]
